FAERS Safety Report 7407782-5 (Version None)
Quarter: 2011Q2

REPORT INFORMATION
  Report Type: 
  Country: None (occurrence: None)
  Receive Date: 20110412
  Receipt Date: 20110329
  Transmission Date: 20111010
  Serious: Yes (Congenital Anomaly)
  Sender: FDA-Public Use
  Company Number: US-MYLANLABS-2011S1006834

PATIENT
  Sex: Male

DRUGS (5)
  1. METHIMAZOLE [Suspect]
     Indication: BASEDOW'S DISEASE
     Route: 064
  2. FOLIC ACID [Concomitant]
     Route: 065
  3. PROPRANOLOL [Concomitant]
     Route: 065
  4. FLUOXETINE [Concomitant]
     Route: 065
  5. PROPYLTHIOURACIL [Concomitant]
     Route: 065

REACTIONS (9)
  - MICROTIA [None]
  - TRACHEO-OESOPHAGEAL FISTULA [None]
  - DRUG EXPOSURE DURING PREGNANCY [None]
  - SKIN DISORDER [None]
  - DEVELOPMENTAL DELAY [None]
  - TRACHEOMALACIA [None]
  - DYSMORPHISM [None]
  - OESOPHAGEAL ATRESIA [None]
  - DEAFNESS [None]
